FAERS Safety Report 17168826 (Version 1)
Quarter: 2019Q4

REPORT INFORMATION
  Report Type: Report from Study
  Country: US (occurrence: US)
  Receive Date: 20191218
  Receipt Date: 20191218
  Transmission Date: 20200122
  Serious: Yes (Other)
  Sender: FDA-Public Use
  Company Number: US-BRISTOL-MYERS SQUIBB COMPANY-BMS-2019-072926

PATIENT
  Sex: Female

DRUGS (1)
  1. ABATACEPT [Suspect]
     Active Substance: ABATACEPT
     Indication: RHEUMATOID ARTHRITIS
     Dosage: 125 MILLIGRAM, QWK
     Route: 058
     Dates: start: 20180619

REACTIONS (8)
  - Musculoskeletal chest pain [Unknown]
  - Memory impairment [Unknown]
  - Amnesia [Unknown]
  - Pneumonia [Unknown]
  - Hypotension [Unknown]
  - Anxiety disorder [Unknown]
  - Syncope [Unknown]
  - Panic disorder [Unknown]
